FAERS Safety Report 8008969-3 (Version None)
Quarter: 2011Q4

REPORT INFORMATION
  Report Type: 
  Country: None (occurrence: None)
  Receive Date: 20111227
  Receipt Date: 20111221
  Transmission Date: 20120403
  Serious: Yes (Hospitalization)
  Sender: FDA-Public Use
  Company Number: US-PFIZER INC-2011310920

PATIENT
  Sex: Female
  Weight: 75.3 kg

DRUGS (5)
  1. TRAMADOL [Concomitant]
     Indication: ARTHRITIS
     Dosage: UNK
  2. TRAMADOL [Concomitant]
     Indication: ARTHRALGIA
  3. LAMICTAL [Concomitant]
     Indication: BIPOLAR I DISORDER
     Dosage: 200 MG, DAILY
  4. EFFEXOR XR [Suspect]
     Indication: HYPOMANIA
     Dosage: 75 MG, DAILY
     Dates: end: 20111129
  5. LITHIUM [Concomitant]
     Indication: BIPOLAR I DISORDER
     Dosage: 450 MG, 2X/DAY
     Dates: start: 19900101

REACTIONS (9)
  - DIZZINESS [None]
  - TREMOR [None]
  - WITHDRAWAL SYNDROME [None]
  - BALANCE DISORDER [None]
  - IMPAIRED DRIVING ABILITY [None]
  - NAUSEA [None]
  - WEIGHT INCREASED [None]
  - DIARRHOEA [None]
  - SOMNOLENCE [None]
